FAERS Safety Report 14624982 (Version 5)
Quarter: 2018Q4

REPORT INFORMATION
  Report Type: Report from Study
  Country: US (occurrence: US)
  Receive Date: 20180312
  Receipt Date: 20181009
  Transmission Date: 20190204
  Serious: Yes (Death, Hospitalization)
  Sender: FDA-Public Use
  Company Number: PHHO2018US003277

PATIENT
  Age: 79 Year
  Sex: Female
  Weight: 60.32 kg

DRUGS (6)
  1. GSK2118436 [Suspect]
     Active Substance: DABRAFENIB
     Indication: MALIGNANT MELANOMA
     Dosage: 150 MG, BID (TOTAL DOSE: 7500MG)
     Route: 048
     Dates: start: 20180113, end: 20180205
  2. GSK1120212 [Suspect]
     Active Substance: TRAMETINIB
     Dosage: 2 MG, QD (TOTAL DOSE:74 MG)
     Route: 048
     Dates: start: 20180628, end: 20180808
  3. NIVOLUMAB [Suspect]
     Active Substance: NIVOLUMAB
     Indication: MALIGNANT MELANOMA
     Dosage: UNK
     Route: 065
     Dates: start: 20170706, end: 20171207
  4. ELIQUIS [Concomitant]
     Active Substance: APIXABAN
     Indication: PRODUCT USED FOR UNKNOWN INDICATION
     Route: 065
  5. GSK1120212 [Suspect]
     Active Substance: TRAMETINIB
     Indication: MALIGNANT MELANOMA
     Dosage: 2 MG, QD (TOTAL DOSE: 50MG)
     Route: 048
     Dates: start: 20180113, end: 20180204
  6. GSK2118436 [Suspect]
     Active Substance: DABRAFENIB
     Dosage: 150 MG, BID (TOTAL DOSE:11250 MG)
     Route: 048
     Dates: start: 20180628, end: 20180808

REACTIONS (15)
  - Muscular weakness [Recovered/Resolved]
  - Muscular weakness [Recovered/Resolved]
  - Syncope [Recovering/Resolving]
  - Diarrhoea [Recovered/Resolved]
  - Vomiting [Recovered/Resolved]
  - Cardiac failure [Recovered/Resolved]
  - Pleural effusion [Recovered/Resolved]
  - Hypotension [Recovered/Resolved]
  - Hyponatraemia [Recovered/Resolved]
  - Nausea [Recovered/Resolved]
  - Cough [Recovered/Resolved]
  - Hyperkalaemia [Recovered/Resolved]
  - Death [Fatal]
  - Hyponatraemia [Recovered/Resolved]
  - Respiratory failure [Recovered/Resolved]

NARRATIVE: CASE EVENT DATE: 20180125
